FAERS Safety Report 7801422-9 (Version None)
Quarter: 2011Q4

REPORT INFORMATION
  Report Type: 
  Country: None (occurrence: None)
  Receive Date: 20111006
  Receipt Date: 20111006
  Transmission Date: 20120403
  Serious: Yes (Hospitalization)
  Sender: FDA-Public Use
  Company Number: None

PATIENT
  Age: 81 Year
  Sex: Male
  Weight: 109 kg

DRUGS (13)
  1. GLIMEPIRIDE [Concomitant]
  2. FOLIC ACID [Concomitant]
  3. M.V.I. [Concomitant]
  4. TRILIPIX [Concomitant]
  5. SIMVASTATIN [Concomitant]
  6. COUMADIN [Concomitant]
  7. VIT E [Concomitant]
  8. AMLODIPINE [Concomitant]
  9. LASIX [Concomitant]
  10. LOPRESSOR [Concomitant]
  11. KEFLEX [Suspect]
     Indication: OSTEOMYELITIS
     Dosage: 500MG BID PO RECENT
     Route: 048
  12. GLYBURIDE [Concomitant]
  13. ASPIRIN [Concomitant]

REACTIONS (4)
  - PYREXIA [None]
  - CHILLS [None]
  - RASH [None]
  - CELLULITIS [None]
